FAERS Safety Report 9088289 (Version 4)
Quarter: 2020Q3

REPORT INFORMATION
  Report Type: Report from Study
  Country: FI (occurrence: FI)
  Receive Date: 20130201
  Receipt Date: 20160321
  Transmission Date: 20201104
  Serious: Yes (Other)
  Sender: FDA-Public Use
  Company Number: FI-ROCHE-1046066

PATIENT
  Age: 53 Year
  Sex: Female

DRUGS (10)
  1. DOCETAXEL. [Suspect]
     Active Substance: DOCETAXEL
     Indication: METASTASES TO BONE
     Dosage: TOTALLY EIGHT CYCLES
     Route: 065
     Dates: start: 20100203, end: 20100602
  2. DOCETAXEL. [Suspect]
     Active Substance: DOCETAXEL
     Indication: BREAST CANCER
  3. LODINE [Concomitant]
     Active Substance: ETODOLAC
     Route: 065
     Dates: start: 20100714
  4. CEPHALEXIN. [Concomitant]
     Active Substance: CEPHALEXIN
     Route: 065
     Dates: start: 20100421, end: 20100425
  5. IBANDRONIC ACID. [Suspect]
     Active Substance: IBANDRONIC ACID
     Indication: BREAST CANCER
     Route: 042
     Dates: start: 20100203, end: 20100602
  6. FEMAR [Concomitant]
     Active Substance: LETROZOLE
     Indication: BREAST CANCER
     Route: 048
  7. BEVACIZUMAB. [Suspect]
     Active Substance: BEVACIZUMAB
     Indication: BREAST CANCER METASTATIC
     Dosage: CYCLICAL
     Route: 042
     Dates: start: 20100203, end: 20111005
  8. IBANDRONIC ACID. [Suspect]
     Active Substance: IBANDRONIC ACID
     Indication: METASTASES TO BONE
     Dosage: 50 MG EVERY SECOND DAY
     Route: 048
     Dates: start: 20100617
  9. PACLITAXEL. [Concomitant]
     Active Substance: PACLITAXEL
  10. DALACINE [Concomitant]
     Active Substance: CLINDAMYCIN
     Route: 065
     Dates: start: 20100504, end: 20100514

REACTIONS (5)
  - Hypertension [Unknown]
  - Nephrotic syndrome [Not Recovered/Not Resolved]
  - Proteinuria [Not Recovered/Not Resolved]
  - Nephrosclerosis [Not Recovered/Not Resolved]
  - Renal failure [Not Recovered/Not Resolved]

NARRATIVE: CASE EVENT DATE: 20101027
